FAERS Safety Report 12546614 (Version 1)
Quarter: 2016Q3

REPORT INFORMATION
  Report Type: Spontaneous
  Country: DE (occurrence: DE)
  Receive Date: 20160711
  Receipt Date: 20160711
  Transmission Date: 20161109
  Serious: Yes (Hospitalization, Other)
  Sender: FDA-Public Use
  Company Number: DE-PFIZER INC-2016323702

PATIENT
  Age: 49 Year
  Sex: Female
  Weight: 78 kg

DRUGS (1)
  1. VANCOMYCIN HCL [Suspect]
     Active Substance: VANCOMYCIN HYDROCHLORIDE
     Indication: INFECTION
     Dosage: 2.5 G, 4X/DAY
     Route: 042
     Dates: start: 20160603, end: 20160605

REACTIONS (3)
  - Accidental overdose [Not Recovered/Not Resolved]
  - Anuria [Not Recovered/Not Resolved]
  - Acute kidney injury [Not Recovered/Not Resolved]

NARRATIVE: CASE EVENT DATE: 20160607
